FAERS Safety Report 22387262 (Version 1)
Quarter: 2023Q2

REPORT INFORMATION
  Report Type: Spontaneous
  Country: CN (occurrence: None)
  Receive Date: 20230531
  Receipt Date: 20230531
  Transmission Date: 20230722
  Serious: Yes (Hospitalization)
  Sender: FDA-Public Use
  Company Number: CN-ROCHE-3358061

PATIENT
  Age: 71 Year
  Sex: Female

DRUGS (18)
  1. VALCYTE [Suspect]
     Active Substance: VALGANCICLOVIR HYDROCHLORIDE
     Indication: Pneumocystis jirovecii pneumonia
     Route: 065
     Dates: start: 20230317, end: 20230405
  2. BACTRIM [Suspect]
     Active Substance: SULFAMETHOXAZOLE\TRIMETHOPRIM
     Indication: Cytomegalovirus infection reactivation
     Dosage: 800MG/160 MG 3 TIMES A DAY
     Route: 048
     Dates: start: 20230315, end: 20230405
  3. AMLODIPINE [Concomitant]
     Active Substance: AMLODIPINE BESYLATE
  4. ARANESP [Concomitant]
     Active Substance: DARBEPOETIN ALFA
  5. ASPIRIN [Concomitant]
     Active Substance: ASPIRIN
  6. ATORVASTATIN [Concomitant]
     Active Substance: ATORVASTATIN
     Dosage: 40 MILLIGRAM IN 80 MILLIGRAM
  7. EZETIMIBE [Concomitant]
     Active Substance: EZETIMIBE
  8. LISINOPRIL [Concomitant]
     Active Substance: LISINOPRIL
     Dosage: 2.5 MILLIGRAM IN 12 HOUR // 5 MILLIGRAM
  9. METOLAZONE [Concomitant]
     Active Substance: METOLAZONE
  10. TORSEMIDE [Concomitant]
     Active Substance: TORSEMIDE
  11. SODIUM BICARBONATE [Concomitant]
     Active Substance: SODIUM BICARBONATE
  12. PANTOZOL [Concomitant]
     Active Substance: PANTOPRAZOLE SODIUM
  13. PREDNISONE [Concomitant]
     Active Substance: PREDNISONE
     Dates: start: 20230324
  14. PREDNISONE [Concomitant]
     Active Substance: PREDNISONE
     Dates: start: 20230325, end: 20230403
  15. PREDNISONE [Concomitant]
     Active Substance: PREDNISONE
     Dates: start: 20230404
  16. ROCALTROL [Concomitant]
     Active Substance: CALCITRIOL
  17. NULOJIX [Concomitant]
     Active Substance: BELATACEPT
  18. CELLCEPT [Concomitant]
     Active Substance: MYCOPHENOLATE MOFETIL

REACTIONS (2)
  - Thrombocytopenia [Recovered/Resolved]
  - Product use in unapproved indication [Unknown]

NARRATIVE: CASE EVENT DATE: 20230317
